FAERS Safety Report 22294580 (Version 1)
Quarter: 2023Q2

REPORT INFORMATION
  Report Type: Spontaneous
  Country: US (occurrence: US)
  Receive Date: 20230508
  Receipt Date: 20230508
  Transmission Date: 20230721
  Serious: No
  Sender: FDA-Public Use
  Company Number: US-AMNEAL PHARMACEUTICALS-2022-AMRX-01554

PATIENT
  Sex: Female

DRUGS (1)
  1. DICLOFENAC SODIUM [Suspect]
     Active Substance: DICLOFENAC SODIUM
     Indication: Arthritis
     Dosage: 1.76 OZ
     Route: 061
     Dates: start: 20220326

REACTIONS (2)
  - Skin burning sensation [Unknown]
  - Blister [Unknown]

NARRATIVE: CASE EVENT DATE: 20220327
